FAERS Safety Report 25032851 (Version 1)
Quarter: 2025Q1

REPORT INFORMATION
  Report Type: Spontaneous
  Country: US (occurrence: US)
  Receive Date: 20250303
  Receipt Date: 20250303
  Transmission Date: 20250409
  Serious: Yes (Other)
  Sender: NOVARTIS
  Company Number: US-002147023-NVSC2025US034536

PATIENT
  Age: 69 Year
  Sex: Male

DRUGS (4)
  1. ZOMETA [Suspect]
     Active Substance: ZOLEDRONIC ACID
     Indication: Product used for unknown indication
     Route: 065
  2. LENVIMA [Suspect]
     Active Substance: LENVATINIB
     Indication: Product used for unknown indication
     Dosage: 10 MG, QD
     Route: 065
     Dates: start: 20230706
  3. LENVIMA [Suspect]
     Active Substance: LENVATINIB
     Dosage: 20 MG, QD
     Route: 065
     Dates: start: 20230726
  4. LENVIMA [Suspect]
     Active Substance: LENVATINIB
     Dosage: 10 MG, QD
     Route: 065
     Dates: start: 20231023

REACTIONS (3)
  - Musculoskeletal discomfort [Unknown]
  - Limb discomfort [Unknown]
  - Exposed bone in jaw [Unknown]
